FAERS Safety Report 9819844 (Version 1)
Quarter: 2013Q1

REPORT INFORMATION
  Report Type: Spontaneous
  Country: US (occurrence: None)
  Receive Date: 20130107
  Receipt Date: 20130107
  Transmission Date: 20140127
  Serious: Yes (Other)
  Sender: FDA-Public Use
  Company Number: PHEH2012US018960

PATIENT
  Age: 39 Year
  Sex: Female

DRUGS (1)
  1. GILENYA (FTY) CAPSULE, 0.5MG [Suspect]
     Indication: MULTIPLE SCLEROSIS
     Route: 048
     Dates: start: 20120913

REACTIONS (12)
  - Pain [None]
  - Hypersomnia [None]
  - Cold sweat [None]
  - Sleep disorder [None]
  - Asthenopia [None]
  - Menopausal symptoms [None]
  - Pituitary-dependent Cushing^s syndrome [None]
  - Insomnia [None]
  - Influenza like illness [None]
  - Cough [None]
  - Diarrhoea [None]
  - Headache [None]
